FAERS Safety Report 4663408-5 (Version None)
Quarter: 2005Q2

REPORT INFORMATION
  Report Type: 
  Country: None (occurrence: None)
  Receive Date: 20050517
  Receipt Date: 20050506
  Transmission Date: 20051028
  Serious: Yes (Hospitalization)
  Sender: FDA-Public Use
  Company Number: GBWYE649609MAY05

PATIENT
  Age: 35 Year
  Sex: Male
  Weight: 104 kg

DRUGS (1)
  1. ENBREL [Suspect]
     Indication: ANKYLOSING SPONDYLITIS
     Dosage: 25MG FREQUENCY UNSPECIFIED
     Route: 058
     Dates: start: 20040510

REACTIONS (4)
  - CHEST PAIN [None]
  - FIBRIN D DIMER INCREASED [None]
  - MYOCARDIAL INFARCTION [None]
  - SINUS TACHYCARDIA [None]
